FAERS Safety Report 9027034 (Version 1)
Quarter: 2013Q1

REPORT INFORMATION
  Report Type: Report from Study
  Country: US (occurrence: US)
  Receive Date: 20130123
  Receipt Date: 20130123
  Transmission Date: 20140127
  Serious: Yes (Hospitalization)
  Sender: FDA-Public Use
  Company Number: US-JNJFOC-20130109451

PATIENT
  Age: 60 None
  Sex: Female
  Weight: 53.52 kg

DRUGS (6)
  1. SIMPONI [Suspect]
     Indication: ARTHRITIS
     Route: 058
     Dates: start: 2011, end: 201209
  2. AZATHIOPRINE [Concomitant]
  3. AMLODIPINE / BENAZEPRIL [Concomitant]
     Indication: BLOOD PRESSURE
     Route: 048
  4. METOPROLOL [Concomitant]
     Indication: BLOOD PRESSURE
     Route: 048
  5. TRAMADOL [Concomitant]
     Indication: PAIN
     Route: 048
  6. MELOXICAM [Concomitant]
     Indication: INFLAMMATION
     Route: 048

REACTIONS (6)
  - Colitis [Unknown]
  - Vomiting [Recovered/Resolved]
  - Abdominal pain upper [Recovered/Resolved]
  - Asthenia [Recovered/Resolved]
  - Clostridium difficile infection [Unknown]
  - Limb injury [Not Recovered/Not Resolved]
